FAERS Safety Report 24797155 (Version 2)
Quarter: 2025Q1

REPORT INFORMATION
  Report Type: Report from Study
  Country: US (occurrence: US)
  Receive Date: 20250101
  Receipt Date: 20250227
  Transmission Date: 20250409
  Serious: Yes (Other)
  Sender: NOVARTIS
  Company Number: US-002147023-NVSC2024US246910

PATIENT
  Age: 76 Year
  Sex: Female

DRUGS (1)
  1. KISQALI [Suspect]
     Active Substance: RIBOCICLIB
     Indication: Neoplasm malignant
     Dosage: 400 MG, QD
     Route: 048
     Dates: start: 20240909, end: 20250225

REACTIONS (3)
  - Cardiac flutter [Unknown]
  - Arrhythmia [Unknown]
  - Liver function test decreased [Recovered/Resolved]

NARRATIVE: CASE EVENT DATE: 20250225
